FAERS Safety Report 20846680 (Version 24)
Quarter: 2023Q4

REPORT INFORMATION
  Report Type: Report from Study
  Country: JP (occurrence: JP)
  Receive Date: 20220519
  Receipt Date: 20231229
  Transmission Date: 20240110
  Serious: Yes (Other)
  Sender: FDA-Public Use
  Company Number: JP-TAKEDA-2022TJP048853

PATIENT
  Age: 67 Year
  Sex: Male

DRUGS (7)
  1. ANTIHEMOPHILIC FACTOR, PEGYLATED (MW 20000) HUMAN SEQUENCE RECOMBINANT [Suspect]
     Active Substance: ANTIHEMOPHILIC FACTOR, PEGYLATED (MW 20000) HUMAN SEQUENCE RECOMBINANT
     Indication: Factor VIII deficiency
     Dosage: 3000 INTERNATIONAL UNIT, 2/WEEK
     Route: 042
     Dates: start: 20220101
  2. ANTIHEMOPHILIC FACTOR, PEGYLATED (MW 20000) HUMAN SEQUENCE RECOMBINANT [Suspect]
     Active Substance: ANTIHEMOPHILIC FACTOR, PEGYLATED (MW 20000) HUMAN SEQUENCE RECOMBINANT
     Indication: Factor VIII deficiency
     Dosage: 3000 INTERNATIONAL UNIT, 2/WEEK
     Route: 042
     Dates: start: 20220101
  3. ANTIHEMOPHILIC FACTOR, PEGYLATED (MW 20000) HUMAN SEQUENCE RECOMBINANT [Suspect]
     Active Substance: ANTIHEMOPHILIC FACTOR, PEGYLATED (MW 20000) HUMAN SEQUENCE RECOMBINANT
     Indication: Factor VIII deficiency
     Dosage: 3000 INTERNATIONAL UNIT, 2/WEEK
     Route: 042
     Dates: start: 20220101
  4. MODERNA COVID-19 VACCINE [Suspect]
     Active Substance: ELASOMERAN
     Indication: COVID-19 immunisation
     Dosage: 1 DOSAGE FORM
     Route: 065
  5. COMIRNATY (TOZINAMERAN) [Concomitant]
     Active Substance: TOZINAMERAN
     Indication: COVID-19 immunisation
     Dosage: 1 DOSAGE FORM, FIRST TIME
     Route: 065
  6. COMIRNATY (TOZINAMERAN) [Concomitant]
     Active Substance: TOZINAMERAN
     Dosage: 1 DOSAGE FORM, SECOND TIME
     Route: 065
  7. Covid-19 vaccine [Concomitant]
     Indication: COVID-19 immunisation
     Dosage: 1 DOSAGE FORM, FOURTH TIME
     Route: 065
     Dates: start: 20220807, end: 20220807

REACTIONS (30)
  - Haemorrhage subcutaneous [Recovered/Resolved]
  - Puncture site haemorrhage [Recovered/Resolved]
  - Hepatitis B [Recovered/Resolved]
  - Haemorrhage subcutaneous [Unknown]
  - Haemorrhage subcutaneous [Unknown]
  - Internal haemorrhage [Recovered/Resolved]
  - Haemorrhage subcutaneous [Recovering/Resolving]
  - Fatigue [Unknown]
  - Anxiety [Unknown]
  - Arthralgia [Unknown]
  - Osteoarthritis [Unknown]
  - Complication associated with device [Recovered/Resolved]
  - Injection site pain [Unknown]
  - Pyrexia [Unknown]
  - Gait disturbance [Unknown]
  - Injection site induration [Unknown]
  - Pyrexia [Recovered/Resolved]
  - Puncture site swelling [Unknown]
  - Back pain [Unknown]
  - Erythema [Unknown]
  - Weight increased [Unknown]
  - Traumatic haemorrhage [Recovered/Resolved]
  - Body fat disorder [Unknown]
  - Blood pressure increased [Unknown]
  - Blood test abnormal [Unknown]
  - Hepatic hypertrophy [Unknown]
  - Ligament sprain [Unknown]
  - Arthralgia [Recovering/Resolving]
  - Joint swelling [Unknown]
  - Cold sweat [Unknown]

NARRATIVE: CASE EVENT DATE: 20220807
